FAERS Safety Report 7671018-0 (Version None)
Quarter: 2011Q3

REPORT INFORMATION
  Report Type: 
  Country: None (occurrence: None)
  Receive Date: 20110809
  Receipt Date: 20110729
  Transmission Date: 20111222
  Serious: Yes (Hospitalization, Other)
  Sender: FDA-Public Use
  Company Number: US-GENZYME-THYM-1002601

PATIENT
  Sex: Female

DRUGS (3)
  1. THYMOGLOBULIN [Suspect]
     Dosage: 110 MG, UNK
     Dates: start: 20110708, end: 20110708
  2. THYMOGLOBULIN [Suspect]
     Dosage: 100 MG, UNK
     Dates: start: 20110709, end: 20110709
  3. THYMOGLOBULIN [Suspect]
     Indication: PROPHYLAXIS AGAINST TRANSPLANT REJECTION
     Dosage: 100 MG, UNK
     Dates: start: 20110708, end: 20110708

REACTIONS (2)
  - DYSPNOEA [None]
  - HYPOXIA [None]
